FAERS Safety Report 7988144-9 (Version None)
Quarter: 2011Q4

REPORT INFORMATION
  Report Type: 
  Country: None (occurrence: None)
  Receive Date: 20111216
  Receipt Date: 20110921
  Transmission Date: 20120403
  Serious: No
  Sender: FDA-Public Use
  Company Number: US-BRISTOL-MYERS SQUIBB COMPANY-15844301

PATIENT
  Age: 81 Year
  Sex: Male

DRUGS (4)
  1. ARICEPT [Concomitant]
  2. BUPROPION HCL [Concomitant]
  3. NAMENDA [Concomitant]
  4. ABILIFY [Suspect]
     Dosage: PACKAGE: BOTTLE
     Dates: start: 20110501

REACTIONS (1)
  - HALLUCINATION [None]
